FAERS Safety Report 19802805 (Version 1)
Quarter: 2021Q3

REPORT INFORMATION
  Report Type: Spontaneous
  Country: JP (occurrence: JP)
  Receive Date: 20210908
  Receipt Date: 20210908
  Transmission Date: 20211014
  Serious: Yes (Other)
  Sender: FDA-Public Use
  Company Number: NVSJ2021JP013076

PATIENT
  Age: 69 Year
  Sex: Female

DRUGS (2)
  1. EQUMET [Suspect]
     Active Substance: METFORMIN HYDROCHLORIDE\VILDAGLIPTIN
     Dosage: 1DF:METFORMIN HYDROCHLORIDE 500MG/ VILDAGLIPTIN 50MG
     Route: 048
  2. EQUMET [Suspect]
     Active Substance: METFORMIN HYDROCHLORIDE\VILDAGLIPTIN
     Indication: TYPE 2 DIABETES MELLITUS
     Dosage: 1DF:METFORMIN HYDROCHLORIDE 250MG/ VILDAGLIPTIN 50MG
     Route: 048

REACTIONS (2)
  - Asthenia [Recovered/Resolved]
  - Diabetes mellitus inadequate control [Unknown]
